FAERS Safety Report 12837251 (Version 2)
Quarter: 2016Q4

REPORT INFORMATION
  Report Type: Report from Study
  Country: FR (occurrence: FR)
  Receive Date: 20161011
  Receipt Date: 20161115
  Transmission Date: 20170207
  Serious: Yes (Hospitalization, Other)
  Sender: FDA-Public Use
  Company Number: FR-B.I. PHARMACEUTICALS,INC./RIDGEFIELD-2016-BI-41344BI

PATIENT
  Age: 70 Year
  Sex: Male
  Weight: 71 kg

DRUGS (9)
  1. BLINDED BIBF 1120 [Suspect]
     Active Substance: NINTEDANIB
     Indication: SYSTEMIC SCLERODERMA
     Route: 048
     Dates: start: 20100708
  2. ESONEPRAZOLE [Concomitant]
     Indication: GASTROOESOPHAGEAL REFLUX DISEASE
  3. PREDNISONE. [Concomitant]
     Active Substance: PREDNISONE
     Indication: SCLERODERMA
     Route: 048
     Dates: start: 2014
  4. MYCOPHENOLATE MOFETIL. [Concomitant]
     Active Substance: MYCOPHENOLATE MOFETIL
     Indication: SCLERODERMA
     Route: 048
     Dates: start: 201505
  5. RAMIPRIL. [Concomitant]
     Active Substance: RAMIPRIL
     Indication: HYPERTENSION
     Route: 048
     Dates: start: 2015
  6. NIFEDIPINE. [Concomitant]
     Active Substance: NIFEDIPINE
     Indication: SCLERODERMA
     Route: 065
     Dates: start: 2014
  7. ESONEPRAZOLE [Concomitant]
     Indication: SCLERODERMA
     Route: 048
     Dates: start: 2014
  8. BLINDED BIBF 1120 [Suspect]
     Active Substance: NINTEDANIB
     Indication: INTERSTITIAL LUNG DISEASE
  9. BOSENTAN. [Concomitant]
     Active Substance: BOSENTAN
     Indication: SCLERODERMA
     Dosage: DOSE PER APP AND DAILY DOSE: 62.5 X 2/DAY
     Route: 048
     Dates: start: 201505

REACTIONS (2)
  - Pyrexia [Recovered/Resolved]
  - Neoplasm malignant [Not Recovered/Not Resolved]

NARRATIVE: CASE EVENT DATE: 20160617
